FAERS Safety Report 23273644 (Version 6)
Quarter: 2024Q3

REPORT INFORMATION
  Report Type: Spontaneous
  Country: US (occurrence: US)
  Receive Date: 20231207
  Receipt Date: 20240711
  Transmission Date: 20241016
  Serious: Yes (Hospitalization, Other)
  Sender: CSL BEHRING
  Company Number: US-BEH-2023165799

PATIENT
  Age: 32 Year
  Sex: Male
  Weight: 107 kg

DRUGS (5)
  1. HEMGENIX [Suspect]
     Active Substance: ETRANACOGENE DEZAPARVOVEC
     Indication: Factor IX deficiency
     Dosage: 214 MILLILITER
     Route: 042
     Dates: start: 20231108
  2. PREDNISONE [Concomitant]
     Active Substance: PREDNISONE
     Indication: Laboratory test abnormal
     Dosage: 60 MILLIGRAM, QD
     Route: 065
     Dates: start: 202311, end: 20231120
  3. PREDNISONE [Concomitant]
     Active Substance: PREDNISONE
     Dosage: UNK
     Dates: start: 20231127
  4. ALPROLIX [Concomitant]
     Active Substance: EFTRENONACOG ALFA
     Indication: Factor IX deficiency
     Dosage: 4500 INTERNATIONAL UNIT
     Route: 042
     Dates: end: 20231105
  5. ZOVIRAX [Concomitant]
     Active Substance: ACYCLOVIR
     Indication: Meningitis enteroviral

REACTIONS (17)
  - Meningitis enteroviral [Recovering/Resolving]
  - Headache [Unknown]
  - Pyrexia [Recovered/Resolved]
  - Eye irritation [Unknown]
  - Fatigue [Unknown]
  - Cough [Unknown]
  - Cough [Unknown]
  - Feeling abnormal [Not Recovered/Not Resolved]
  - Neck pain [Unknown]
  - Nausea [Unknown]
  - Vomiting [Unknown]
  - Coagulation factor IX level decreased [Unknown]
  - Pain [Recovered/Resolved]
  - Hypertransaminasaemia [Recovered/Resolved]
  - Aspartate aminotransferase increased [Recovered/Resolved]
  - Alanine aminotransferase increased [Recovered/Resolved]
  - Hepatotoxicity [Recovered/Resolved]

NARRATIVE: CASE EVENT DATE: 20231101
